FAERS Safety Report 4738279-9 (Version None)
Quarter: 2005Q3

REPORT INFORMATION
  Report Type: 
  Country: None (occurrence: None)
  Receive Date: 20050728
  Receipt Date: 20050401
  Transmission Date: 20060218
  Serious: No
  Sender: FDA-Public Use
  Company Number: 200512687US

PATIENT
  Age: 39 Year
  Sex: Male

DRUGS (2)
  1. KETEK [Suspect]
     Dates: start: 20050330, end: 20050401
  2. CODEINE/PROMETHAZINE [Concomitant]

REACTIONS (1)
  - VISION BLURRED [None]
